FAERS Safety Report 5733293-9 (Version None)
Quarter: 2008Q2

REPORT INFORMATION
  Report Type: 
  Country: None (occurrence: None)
  Receive Date: 20080509
  Receipt Date: 20080509
  Transmission Date: 20081010
  Serious: Yes (Other)
  Sender: FDA-Public Use
  Company Number: B0519642A

PATIENT
  Age: 75 Year
  Sex: Female

DRUGS (13)
  1. PAXIL [Suspect]
     Indication: DEPRESSION
     Dosage: 10MG PER DAY
     Route: 048
     Dates: start: 20080503
  2. HALOPERIDOL [Concomitant]
  3. ALENDRONATE SODIUM [Concomitant]
     Route: 048
  4. PROMAC [Concomitant]
     Route: 048
  5. OMEPRAZOLE [Concomitant]
  6. TIENAM [Concomitant]
  7. NU-LOTAN [Concomitant]
     Route: 048
  8. FUTHAN [Concomitant]
     Route: 042
  9. GASMOTIN [Concomitant]
     Route: 048
  10. FUROSEMIDE [Concomitant]
  11. ASPIRIN [Concomitant]
     Route: 048
  12. PREDONINE [Concomitant]
  13. UNKNOWN MEDICATION [Concomitant]

REACTIONS (1)
  - HEPATITIS FULMINANT [None]
